FAERS Safety Report 9631711 (Version 1)
Quarter: 2013Q4

REPORT INFORMATION
  Report Type: Spontaneous
  Country: US (occurrence: US)
  Receive Date: 20131018
  Receipt Date: 20131018
  Transmission Date: 20140711
  Serious: No
  Sender: FDA-Public Use
  Company Number: US-ELI_LILLY_AND_COMPANY-US201310004807

PATIENT
  Sex: Male

DRUGS (1)
  1. CIALIS [Suspect]
     Indication: ERECTILE DYSFUNCTION
     Dosage: 1 DF, UNKNOWN
     Route: 048

REACTIONS (7)
  - Vision blurred [Unknown]
  - Chest pain [Unknown]
  - Respiratory rate decreased [Unknown]
  - Dyspnoea [Unknown]
  - Ejaculation failure [Unknown]
  - Headache [Unknown]
  - Drug ineffective [Unknown]
